FAERS Safety Report 14065125 (Version 2)
Quarter: 2017Q4

REPORT INFORMATION
  Report Type: Spontaneous
  Country: JP (occurrence: JP)
  Receive Date: 20171009
  Receipt Date: 20171026
  Transmission Date: 20180321
  Serious: Yes (Hospitalization)
  Sender: FDA-Public Use
  Company Number: JP-OTSUKA-2017_021404

PATIENT
  Age: 78 Year
  Sex: Male

DRUGS (5)
  1. APIXABAN [Suspect]
     Active Substance: APIXABAN
     Indication: LACUNAR INFARCTION
     Dosage: UNK
     Route: 048
  2. CILOSTAZOL. [Suspect]
     Active Substance: CILOSTAZOL
     Indication: LACUNAR INFARCTION
     Dosage: UNK
     Route: 048
  3. CILOSTAZOL. [Suspect]
     Active Substance: CILOSTAZOL
     Dosage: UNK
     Route: 048
  4. HEPARIN SODIUM. [Concomitant]
     Active Substance: HEPARIN SODIUM
     Indication: ANTICOAGULANT THERAPY
     Dosage: UNK
     Route: 042
  5. APIXABAN [Suspect]
     Active Substance: APIXABAN
     Dosage: UNK
     Route: 048

REACTIONS (2)
  - Haematoma [Recovering/Resolving]
  - Carpal tunnel syndrome [Recovering/Resolving]
